FAERS Safety Report 13652702 (Version 1)
Quarter: 2017Q2

REPORT INFORMATION
  Report Type: Spontaneous
  Country: US (occurrence: US)
  Receive Date: 20170614
  Receipt Date: 20170614
  Transmission Date: 20170830
  Serious: No
  Sender: FDA-Public Use
  Company Number: US-ROCHE-780472

PATIENT
  Age: 57 Year
  Sex: Female
  Weight: 54.48 kg

DRUGS (3)
  1. XELODA [Suspect]
     Active Substance: CAPECITABINE
     Dosage: DECREASED DOSE
     Route: 048
  2. XELODA [Suspect]
     Active Substance: CAPECITABINE
     Dosage: INCREASED DOSE,  3 TABLETS MORNING, 2 TABLETS EVENING
     Route: 048
  3. XELODA [Suspect]
     Active Substance: CAPECITABINE
     Indication: BREAST CANCER METASTATIC
     Dosage: CYCLE 2 WEEKS ON, 1 WEEK OFF
     Route: 048

REACTIONS (6)
  - Pain of skin [Not Recovered/Not Resolved]
  - Drug ineffective [Unknown]
  - Pulmonary mass [Unknown]
  - Rash [Not Recovered/Not Resolved]
  - Vomiting [Unknown]
  - Pruritus [Not Recovered/Not Resolved]

NARRATIVE: CASE EVENT DATE: 201105
